FAERS Safety Report 12008206 (Version 1)
Quarter: 2016Q1

REPORT INFORMATION
  Report Type: Spontaneous
  Country: US (occurrence: US)
  Receive Date: 20160205
  Receipt Date: 20160205
  Transmission Date: 20160526
  Serious: Yes (Hospitalization)
  Sender: FDA-Public Use
  Company Number: US-ABBVIE-15K-163-1443364-00

PATIENT
  Sex: Female
  Weight: 69.01 kg

DRUGS (1)
  1. HUMIRA [Suspect]
     Active Substance: ADALIMUMAB
     Indication: RHEUMATOID ARTHRITIS
     Route: 065
     Dates: end: 2015

REACTIONS (2)
  - Bronchitis [Unknown]
  - Pneumonia [Unknown]

NARRATIVE: CASE EVENT DATE: 2015
